FAERS Safety Report 7631695-7 (Version None)
Quarter: 2011Q3

REPORT INFORMATION
  Report Type: 
  Country: None (occurrence: None)
  Receive Date: 20110725
  Receipt Date: 20110218
  Transmission Date: 20111222
  Serious: No
  Sender: FDA-Public Use
  Company Number: US-BRISTOL-MYERS SQUIBB COMPANY-15559362

PATIENT
  Age: 4 Decade
  Sex: Male

DRUGS (3)
  1. HEPARIN SODIUM [Suspect]
  2. CHEMOTHERAPY [Suspect]
  3. COUMADIN [Suspect]
     Dosage: DOSE REDUCED TO 2.5MG QD AND 5MG EVERY 2 DAYS/WEEK

REACTIONS (1)
  - INTERNATIONAL NORMALISED RATIO INCREASED [None]
